FAERS Safety Report 23343230 (Version 1)
Quarter: 2023Q4

REPORT INFORMATION
  Report Type: Spontaneous
  Country: US (occurrence: US)
  Receive Date: 20231227
  Receipt Date: 20231227
  Transmission Date: 20240110
  Serious: No
  Sender: FDA-Public Use
  Company Number: US-UPSHER-SMITH LABORATORIES, LLC-2023USL00807

PATIENT
  Age: 84 Year
  Sex: Female

DRUGS (1)
  1. KLOR-CON M [Suspect]
     Active Substance: POTASSIUM CHLORIDE

REACTIONS (3)
  - Foreign body in throat [Recovered/Resolved]
  - Choking [Recovered/Resolved]
  - Product use complaint [Unknown]
